FAERS Safety Report 12479585 (Version 1)
Quarter: 2016Q2

REPORT INFORMATION
  Report Type: Spontaneous
  Country: US (occurrence: None)
  Receive Date: 20160617
  Receipt Date: 20160617
  Transmission Date: 20160815
  Serious: No
  Sender: FDA-Public Use
  Company Number: None

PATIENT
  Age: 44 Year
  Sex: Female

DRUGS (1)
  1. TALTZ [Suspect]
     Active Substance: IXEKIZUMAB
     Indication: PSORIASIS
     Dosage: 80MG EVERY 4 WEEKS SUB Q
     Route: 058
     Dates: start: 20160613, end: 20160615

REACTIONS (3)
  - Injection site erythema [None]
  - Injection site swelling [None]
  - Injection site warmth [None]

NARRATIVE: CASE EVENT DATE: 20160615
